FAERS Safety Report 24294232 (Version 1)
Quarter: 2024Q3

REPORT INFORMATION
  Report Type: Spontaneous
  Country: US (occurrence: US)
  Receive Date: 20240906
  Receipt Date: 20240906
  Transmission Date: 20241016
  Serious: No
  Sender: DOMPE FARMACEUTICI
  Company Number: US-FARMAPROD-202406-2197

PATIENT
  Sex: Female
  Weight: 53.52 kg

DRUGS (4)
  1. OXERVATE [Suspect]
     Active Substance: CENEGERMIN-BKBJ
     Indication: Neurotrophic keratopathy
     Route: 047
     Dates: start: 20240514
  2. OXERVATE [Suspect]
     Active Substance: CENEGERMIN-BKBJ
  3. JAKAFI [Concomitant]
     Active Substance: RUXOLITINIB
  4. FAMOTIDINE [Concomitant]
     Active Substance: FAMOTIDINE

REACTIONS (3)
  - Eye pain [Unknown]
  - Hordeolum [Recovered/Resolved]
  - Eye irritation [Recovered/Resolved]
